FAERS Safety Report 8110363-1 (Version None)
Quarter: 2012Q1

REPORT INFORMATION
  Report Type: 
  Country: None (occurrence: None)
  Receive Date: 20120202
  Receipt Date: 20120125
  Transmission Date: 20120608
  Serious: Yes (Other)
  Sender: FDA-Public Use
  Company Number: FR-ASTRAZENECA-2011SE75977

PATIENT
  Age: 910 Month
  Sex: Male

DRUGS (6)
  1. CRESTOR [Suspect]
     Dosage: DAILY
     Route: 048
     Dates: end: 20110603
  2. MICARDIS [Concomitant]
     Route: 048
  3. PLAVIX [Concomitant]
     Route: 048
  4. CELECTOL [Concomitant]
     Route: 048
  5. CRESTOR [Suspect]
     Dosage: DAILY
     Route: 048
     Dates: start: 20111110, end: 20111120
  6. CHRONADALATE SR [Concomitant]
     Route: 048

REACTIONS (2)
  - EOSINOPHILIC PNEUMONIA [None]
  - EOSINOPHILIA [None]
